FAERS Safety Report 4766171-2 (Version None)
Quarter: 2005Q3

REPORT INFORMATION
  Report Type: 
  Country: None (occurrence: None)
  Receive Date: 20050909
  Receipt Date: 20050808
  Transmission Date: 20060218
  Serious: Yes (Other)
  Sender: FDA-Public Use
  Company Number: 2005BH001511

PATIENT
  Sex: Female

DRUGS (1)
  1. DIANEAL [Suspect]
     Indication: HAEMODIALYSIS
     Dosage: 2000 ML; IP
     Route: 033

REACTIONS (3)
  - ABNORMAL BEHAVIOUR [None]
  - BURNING SENSATION [None]
  - INFUSION RELATED REACTION [None]
